FAERS Safety Report 12093505 (Version 1)
Quarter: 2016Q1

REPORT INFORMATION
  Report Type: Spontaneous
  Country: GB (occurrence: None)
  Receive Date: 20160217
  Receipt Date: 20160217
  Transmission Date: 20160526
  Serious: Yes (Other)
  Sender: FDA-Public Use
  Company Number: 2016-01245

PATIENT
  Sex: Male

DRUGS (1)
  1. CLOZAPINE (CLOZAPINE) UNK, UNK [Suspect]
     Active Substance: CLOZAPINE
     Indication: SCHIZOPHRENIA

REACTIONS (2)
  - Generalised tonic-clonic seizure [None]
  - Myoclonus [None]

NARRATIVE: CASE EVENT DATE: 20140228
